FAERS Safety Report 9978577 (Version 1)
Quarter: 2014Q1

REPORT INFORMATION
  Report Type: Report from Study
  Country: US (occurrence: US)
  Receive Date: 20140306
  Receipt Date: 20140306
  Transmission Date: 20141002
  Serious: No
  Sender: FDA-Public Use
  Company Number: US-ABBVIE-13P-163-1173953-00

PATIENT
  Age: 32 Year
  Sex: Male
  Weight: 70.37 kg

DRUGS (6)
  1. HUMIRA [Suspect]
     Indication: CROHN^S DISEASE
     Dosage: ONE DOSE
  2. HUMIRA [Suspect]
     Dosage: ONE DOSE
  3. HUMIRA [Suspect]
  4. HUMIRA [Suspect]
     Dates: start: 201310
  5. CEPHALEXIN [Suspect]
     Indication: PAROTITIS
     Dates: start: 201309
  6. ANTIBIOTICS [Suspect]
     Indication: PAROTITIS
     Dates: start: 201309

REACTIONS (2)
  - Parotitis [Recovered/Resolved]
  - Crohn^s disease [Recovering/Resolving]
